FAERS Safety Report 4322582-0 (Version None)
Quarter: 2004Q1

REPORT INFORMATION
  Report Type: 
  Country: None (occurrence: None)
  Receive Date: 20040324
  Receipt Date: 20040212
  Transmission Date: 20041129
  Serious: Yes (Death, Life-Threatening, Other)
  Sender: FDA-Public Use
  Company Number: PHBS2004JP02074

PATIENT
  Age: 76 Year
  Sex: Female

DRUGS (1)
  1. GLEEVEC [Suspect]
     Indication: GASTROINTESTINAL STROMAL TUMOUR
     Dosage: 300 MG/D
     Route: 048
     Dates: start: 20040124, end: 20040127

REACTIONS (3)
  - DEATH [None]
  - GENERALISED OEDEMA [None]
  - TUMOUR HAEMORRHAGE [None]
